FAERS Safety Report 11826780 (Version 2)
Quarter: 2015Q4

REPORT INFORMATION
  Report Type: Spontaneous
  Country: US (occurrence: US)
  Receive Date: 20151211
  Receipt Date: 20151211
  Transmission Date: 20160305
  Serious: No
  Sender: FDA-Public Use
  Company Number: US-SHIRE-US201515423

PATIENT
  Age: 33 Year
  Sex: Female

DRUGS (2)
  1. NATPARA (PARATHYROID HORMONE) [Suspect]
     Active Substance: PARATHYROID HORMONE
     Indication: HYPOPARATHYROIDISM
     Dosage: 75 ?G, UNK
     Route: 058
     Dates: start: 20150808
  2. NATPARA (PARATHYROID HORMONE) [Suspect]
     Active Substance: PARATHYROID HORMONE
     Indication: HYPOPARATHYROIDISM
     Dosage: 75 ?G, UNK
     Route: 058
     Dates: start: 20150808

REACTIONS (3)
  - Drug dose omission [Unknown]
  - Device issue [Not Recovered/Not Resolved]
  - Product reconstitution issue [Unknown]

NARRATIVE: CASE EVENT DATE: 20151111
